FAERS Safety Report 6953167 (Version 6)
Quarter: 2014Q2

REPORT INFORMATION
  Report Type: Report from Study
  Country: US (occurrence: US)
  Receive Date: 20090326
  Receipt Date: 20140421
  Transmission Date: 20141212
  Serious: Yes (Hospitalization, Other)
  Sender: FDA-Public Use
  Company Number: US-BRISTOL-MYERS SQUIBB COMPANY-14557888

PATIENT
  Age: 56 Year
  Sex: Female
  Weight: 70.56 kg

DRUGS (17)
  1. CETUXIMAB [Suspect]
     Indication: TRANSITIONAL CELL CARCINOMA
     Dosage: D1 + D15 OF 28D CYCLE, LAST DOSE BEFORE EVENT 04-MAR-2009
     Route: 042
     Dates: start: 20090204
  2. CISPLATIN [Suspect]
     Indication: TRANSITIONAL CELL CARCINOMA
     Dosage: FREQ-D1 OF 2 DAY CYCLE
     Route: 042
     Dates: start: 20090204
  3. GEMCITABINE [Suspect]
     Indication: BLADDER TRANSITIONAL CELL CARCINOMA
     Dosage: D1,15 + 21 OF 28D CYCLE , LAST DOSE BEFORE EVENT 11-MAR-2009
     Route: 042
     Dates: start: 20090204
  4. OXYCODONE HCL [Concomitant]
     Indication: PAIN
     Dosage: 1 DOSAGE FORM = 5-10MG.?FREQ-Q2-4H(USES 5MG QHS)
     Route: 048
  5. PRILOSEC [Concomitant]
     Route: 048
  6. CALCIUM + VITAMIN D [Concomitant]
     Dosage: 1 DOSAGE FORM = 500/200
     Route: 048
  7. COLACE [Concomitant]
     Route: 048
  8. LORAZEPAM [Concomitant]
     Dosage: 1DF = 0.5MG TABS, 1 TO 2 TABS, Q4-6H
     Route: 048
  9. MINOCYCLINE [Concomitant]
     Route: 048
  10. REGLAN [Concomitant]
     Route: 048
  11. MIRALAX [Concomitant]
     Route: 048
  12. COMPAZINE [Concomitant]
     Dosage: Q6-8 HOUR
     Route: 048
  13. DEXAMETHASONE [Concomitant]
     Indication: NAUSEA
     Dosage: BID
     Route: 048
  14. EMEND [Concomitant]
     Dosage: EMEND BIFOLD PACK.DAY 2 + 3 OF CHEMO
     Route: 048
  15. EMLA [Concomitant]
     Dosage: EMLA CREAM APPLY 30 MIN PRIOR TO ACESS
  16. FENTANYL PATCH [Concomitant]
     Route: 062
  17. ONDANSETRON HCL [Concomitant]
     Route: 048

REACTIONS (6)
  - Malignant neoplasm progression [Unknown]
  - Deep vein thrombosis [Unknown]
  - Pulmonary embolism [Unknown]
  - Neutropenia [Recovered/Resolved]
  - Confusional state [Recovered/Resolved]
  - Ataxia [Recovered/Resolved]
